FAERS Safety Report 20978782 (Version 1)
Quarter: 2022Q2

REPORT INFORMATION
  Report Type: Spontaneous
  Country: FR (occurrence: FR)
  Receive Date: 20220619
  Receipt Date: 20220619
  Transmission Date: 20220721
  Serious: Yes (Other)
  Sender: FDA-Public Use
  Company Number: None

PATIENT
  Age: 29 Year
  Sex: Male
  Weight: 62 kg

DRUGS (1)
  1. MODAFINIL [Suspect]
     Active Substance: MODAFINIL
     Indication: Somnolence
     Dosage: STRENGTH 100MG, FREQUENCY TIME 1DAYS, DURATION 46DAYS, 2DF
     Route: 048
     Dates: start: 20220317, end: 20220502

REACTIONS (4)
  - Irritability [Not Recovered/Not Resolved]
  - Depressed mood [Not Recovered/Not Resolved]
  - Muscle spasms [Not Recovered/Not Resolved]
  - Headache [Not Recovered/Not Resolved]

NARRATIVE: CASE EVENT DATE: 20220301
